FAERS Safety Report 15286387 (Version 2)
Quarter: 2018Q4

REPORT INFORMATION
  Report Type: Spontaneous
  Country: PL (occurrence: PL)
  Receive Date: 20180816
  Receipt Date: 20181008
  Transmission Date: 20190204
  Serious: Yes (Other)
  Sender: FDA-Public Use
  Company Number: PL-MYLANLABS-2018M1061865

PATIENT
  Age: 19 Year
  Sex: Male

DRUGS (3)
  1. LEVETIRACETAM. [Suspect]
     Active Substance: LEVETIRACETAM
     Indication: PARTIAL SEIZURES
     Dosage: 1500 MG, QD
     Route: 065
     Dates: start: 20160101
  2. TIAPRIDAL [Suspect]
     Active Substance: TIAPRIDE HYDROCHLORIDE
     Indication: PARTIAL SEIZURES
     Dosage: 250 MG, QD
     Route: 065
     Dates: start: 20160101
  3. VALPROIC ACID. [Suspect]
     Active Substance: VALPROIC ACID
     Indication: PARTIAL SEIZURES
     Dosage: 1000 MG, QD
     Route: 065
     Dates: start: 20160101

REACTIONS (4)
  - Partial seizures [Recovered/Resolved]
  - Drug ineffective [Unknown]
  - Multiple-drug resistance [Recovered/Resolved]
  - Loss of consciousness [Unknown]
